FAERS Safety Report 23284053 (Version 2)
Quarter: 2023Q4

REPORT INFORMATION
  Report Type: Other
  Country: SE (occurrence: None)
  Receive Date: 20231211
  Receipt Date: 20231219
  Transmission Date: 20240110
  Serious: Yes (Other)
  Sender: FDA-Public Use
  Company Number: SE-ROCHE-3459503

PATIENT
  Sex: Male
  Weight: 34.9 kg

DRUGS (2)
  1. ENTRECTINIB [Suspect]
     Active Substance: ENTRECTINIB
     Indication: Neuroblastoma
     Route: 048
     Dates: start: 20161101, end: 20231122
  2. CELEBREX [Concomitant]
     Active Substance: CELECOXIB
     Indication: Neuroblastoma
     Route: 048
     Dates: start: 20160406

REACTIONS (4)
  - Pathological fracture [Recovered/Resolved with Sequelae]
  - Pathological fracture [Unknown]
  - Weight increased [Unknown]
  - Body mass index increased [Unknown]

NARRATIVE: CASE EVENT DATE: 20230101
